FAERS Safety Report 7897043-2 (Version None)
Quarter: 2011Q4

REPORT INFORMATION
  Report Type: 
  Country: None (occurrence: None)
  Receive Date: 20111107
  Receipt Date: 20111024
  Transmission Date: 20120403
  Serious: Yes (Hospitalization)
  Sender: FDA-Public Use
  Company Number: FR-JNJFOC-20110702826

PATIENT
  Sex: Male

DRUGS (11)
  1. LASIX [Concomitant]
  2. MEMANTINE HYDROCHLORIDE [Suspect]
     Indication: DEMENTIA ALZHEIMER'S TYPE
     Route: 048
     Dates: end: 20110316
  3. ATHYMIL [Suspect]
     Indication: BEHAVIOURAL AND PSYCHIATRIC SYMPTOMS OF DEMENTIA
     Route: 048
  4. ACETAMINOPHEN AND TRAMADOL HCL [Suspect]
     Indication: PAIN
     Dosage: 1 DF, 2/DAY
     Route: 048
  5. DIPIPERON [Suspect]
     Indication: DEMENTIA ALZHEIMER'S TYPE
     Route: 048
  6. ACETAMINOPHEN AND TRAMADOL HCL [Suspect]
     Indication: BEHAVIOURAL AND PSYCHIATRIC SYMPTOMS OF DEMENTIA
     Dosage: 1 DF, 2/DAY
     Route: 048
  7. IMOVANE [Suspect]
     Indication: DEPRESSION
     Route: 048
  8. IMOVANE [Suspect]
     Indication: BEHAVIOURAL AND PSYCHIATRIC SYMPTOMS OF DEMENTIA
     Route: 048
  9. AMLODIPINE [Concomitant]
  10. DIPIPERON [Suspect]
     Route: 048
     Dates: end: 20110316
  11. ATHYMIL [Suspect]
     Indication: DEPRESSION
     Route: 048

REACTIONS (2)
  - SOMNOLENCE [None]
  - FALL [None]
